FAERS Safety Report 5788864-0 (Version None)
Quarter: 2008Q2

REPORT INFORMATION
  Report Type: 
  Country: None (occurrence: None)
  Receive Date: 20080626
  Receipt Date: 20071120
  Transmission Date: 20081010
  Serious: No
  Sender: FDA-Public Use
  Company Number: US-ASTRAZENECA-2007UW26753

PATIENT
  Age: 55 Year
  Sex: Female
  Weight: 113.4 kg

DRUGS (3)
  1. PULMICORT FLEXHALER [Suspect]
     Indication: ASTHMA
     Dosage: 180 UG TWO PUFFS BID
     Route: 055
  2. VERAPAMIL [Concomitant]
  3. VENTOLIN [Concomitant]

REACTIONS (3)
  - DYSPEPSIA [None]
  - FEELING ABNORMAL [None]
  - THROAT IRRITATION [None]
